FAERS Safety Report 10161752 (Version 1)
Quarter: 2014Q2

REPORT INFORMATION
  Report Type: Spontaneous
  Country: KR (occurrence: None)
  Receive Date: 20140507
  Receipt Date: 20140507
  Transmission Date: 20141212
  Serious: Yes (Hospitalization)
  Sender: FDA-Public Use
  Company Number: FK201401608

PATIENT
  Age: 57 Year
  Sex: Male

DRUGS (5)
  1. DOXORUBICIN (MANUFACTURER UNKNOWN) (DOXORUBICIN HYDROCHLORIDE) (DOXORUBCIN HYDROCHLORIDE) [Suspect]
     Indication: HEPATOCELLULAR CARCINOMA
  2. LIPIODOL (IODIZED OIL) (IODIZED OIL) [Suspect]
     Indication: HEPATOCELLULAR CARCINOMA
  3. GELFOAM (ABSORBABLE GELATIN SPONGE) (ABSORBABLE GELATIN SPONGE) [Suspect]
     Indication: HEPATOCELLULAR CARCINOMA
  4. LAMIVUDINE (LAMIVUDINE) [Concomitant]
  5. ADEFOVIR DIPIVOXIL (ADEFOVIR DIPIVOXIL) [Concomitant]

REACTIONS (4)
  - Paraplegia [None]
  - Sensory disturbance [None]
  - Dysuria [None]
  - Dyschezia [None]
